FAERS Safety Report 7853918-1 (Version None)
Quarter: 2011Q4

REPORT INFORMATION
  Report Type: 
  Country: None (occurrence: None)
  Receive Date: 20111026
  Receipt Date: 20111021
  Transmission Date: 20120403
  Serious: No
  Sender: FDA-Public Use
  Company Number: US-PFIZER INC-2011256187

PATIENT
  Sex: Female
  Weight: 106.5 kg

DRUGS (4)
  1. EXEMESTANE [Suspect]
     Indication: BREAST CANCER
     Dosage: 25 MG, ALTERNATE DAY
     Route: 048
     Dates: start: 20110901
  2. EXEMESTANE [Suspect]
     Dosage: 25 MG, 1X/DAY
     Route: 048
     Dates: start: 20111001, end: 20111001
  3. EXEMESTANE [Suspect]
     Dosage: 25 MG, ALTERNATE DAY
     Route: 048
     Dates: start: 20111001
  4. TOPROL-XL [Concomitant]
     Indication: HYPERTENSION
     Dosage: 50 MG, 2X/DAY

REACTIONS (4)
  - HOT FLUSH [None]
  - CONFUSIONAL STATE [None]
  - MALAISE [None]
  - FEELING ABNORMAL [None]
